FAERS Safety Report 8340341-9 (Version None)
Quarter: 2012Q2

REPORT INFORMATION
  Report Type: 
  Country: None (occurrence: None)
  Receive Date: 20120507
  Receipt Date: 20120424
  Transmission Date: 20120825
  Serious: Yes (Other)
  Sender: FDA-Public Use
  Company Number: US-JNJFOC-20120412385

PATIENT
  Age: 50 Year
  Sex: Male

DRUGS (2)
  1. INVEGA [Suspect]
     Indication: AUTISM
     Route: 048
  2. DEPAKOTE [Suspect]
     Indication: AUTISM
     Route: 065

REACTIONS (2)
  - AGGRESSION [None]
  - DRUG ABUSE [None]
